FAERS Safety Report 8195460-7 (Version None)
Quarter: 2012Q1

REPORT INFORMATION
  Report Type: 
  Country: None (occurrence: None)
  Receive Date: 20120308
  Receipt Date: 20120228
  Transmission Date: 20120608
  Serious: Yes (Other)
  Sender: FDA-Public Use
  Company Number: PHHY2012MX017527

PATIENT
  Sex: Female

DRUGS (2)
  1. BUDESONIDE [Suspect]
     Dosage: 2 DF, PER DAY
     Dates: start: 20110405
  2. FORADIL [Suspect]
     Indication: ASTHMA
     Dosage: 2 DF PER DAY
     Dates: start: 20110405

REACTIONS (4)
  - INFLAMMATION [None]
  - INFLUENZA [None]
  - COUGH [None]
  - ANGINA PECTORIS [None]
